FAERS Safety Report 7409458-7 (Version None)
Quarter: 2011Q2

REPORT INFORMATION
  Report Type: 
  Country: None (occurrence: None)
  Receive Date: 20110412
  Receipt Date: 20110408
  Transmission Date: 20111010
  Serious: Yes (Life-Threatening, Hospitalization)
  Sender: FDA-Public Use
  Company Number: PHHO2011SE06240

PATIENT
  Sex: Male
  Weight: 69 kg

DRUGS (3)
  1. AMN107 [Suspect]
     Dosage: NO TREATMENT RECEIVED
     Dates: start: 20110327, end: 20110329
  2. AMN107 [Suspect]
     Dosage: 300 MG, BID
     Route: 048
     Dates: start: 20110330
  3. AMN107 [Suspect]
     Indication: CHRONIC MYELOID LEUKAEMIA
     Dosage: 300 MG, BID
     Route: 048
     Dates: start: 20101207, end: 20110326

REACTIONS (1)
  - MYOCARDIAL INFARCTION [None]
